FAERS Safety Report 5704483-6 (Version None)
Quarter: 2008Q2

REPORT INFORMATION
  Report Type: 
  Country: None (occurrence: None)
  Receive Date: 20080414
  Receipt Date: 20080404
  Transmission Date: 20081010
  Serious: Yes (Hospitalization)
  Sender: FDA-Public Use
  Company Number: US-MERCK-0804USA00395

PATIENT
  Age: 9 Year
  Sex: Male

DRUGS (3)
  1. SINGULAIR [Suspect]
     Indication: ASTHMA
     Route: 048
     Dates: start: 20020101, end: 20020701
  2. SINGULAIR [Suspect]
     Route: 048
     Dates: start: 20020701, end: 20060701
  3. SINGULAIR [Suspect]
     Route: 048
     Dates: start: 20060701

REACTIONS (4)
  - ADVERSE EVENT [None]
  - MENTAL DISORDER [None]
  - NASOPHARYNGITIS [None]
  - SCARLET FEVER [None]
